FAERS Safety Report 8403690 (Version 9)
Quarter: 2012Q4

REPORT INFORMATION
  Report Type: Report from Study
  Country: CA (occurrence: CA)
  Receive Date: 20120213
  Receipt Date: 20121114
  Transmission Date: 20130627
  Serious: Yes (Hospitalization, Other)
  Sender: FDA-Public Use
  Company Number: CA-ABBOTT-12P-028-0901366-00

PATIENT
  Age: 78 None
  Sex: Male
  Weight: 73 kg

DRUGS (10)
  1. LUPRON DEPOT 30 MG [Suspect]
     Indication: PROSTATE CANCER
     Dates: start: 20070126
  2. LUPRON DEPOT 30 MG [Suspect]
     Dates: start: 200203, end: 200610
  3. LUPRON DEPOT 30 MG [Suspect]
     Dosage: Intermittent Lupron
     Dates: start: 199605, end: 20110808
  4. DOCETAXEL [Suspect]
     Indication: PRODUCT USED FOR UNKNOWN INDICATION
     Route: 042
     Dates: start: 20110810, end: 20110810
  5. DOCETAXEL [Suspect]
     Route: 042
     Dates: start: 20110720, end: 20110720
  6. LIPITOR [Concomitant]
     Indication: HYPERLIPIDAEMIA
     Route: 048
     Dates: start: 2004
  7. MULTISURE FOR MEN [Concomitant]
     Indication: PROPHYLAXIS
     Route: 048
     Dates: start: 20061107
  8. LORAZEPAM [Concomitant]
     Indication: ANXIETY
     Route: 048
     Dates: start: 1986
  9. ASPIRIN [Concomitant]
     Indication: PROPHYLAXIS
     Route: 048
     Dates: start: 201110
  10. BISOPROLOL [Concomitant]
     Indication: HYPERTENSION
     Route: 048
     Dates: start: 201110

REACTIONS (51)
  - Asthenia [Unknown]
  - Diarrhoea haemorrhagic [Unknown]
  - Gastroenteritis Escherichia coli [Recovered/Resolved]
  - Staphylococcal sepsis [Recovered/Resolved]
  - Endocarditis bacterial [Recovered/Resolved]
  - Cardiac failure congestive [Not Recovered/Not Resolved]
  - Colitis ischaemic [Unknown]
  - Neutropenia [Unknown]
  - Renal failure [Unknown]
  - Obstructive uropathy [Unknown]
  - Prostate cancer metastatic [Unknown]
  - Rash maculo-papular [Unknown]
  - Rash pruritic [Unknown]
  - Rash erythematous [Unknown]
  - Device occlusion [Recovered/Resolved]
  - Pyrexia [Unknown]
  - Tachycardia [Unknown]
  - Staphylococcal infection [Unknown]
  - Device related infection [Recovered/Resolved]
  - Malaise [Unknown]
  - Asthenia [Unknown]
  - Immunosuppression [Unknown]
  - Cushingoid [Unknown]
  - Rash erythematous [Unknown]
  - Hyperlipidaemia [Unknown]
  - Rash maculo-papular [Unknown]
  - Fatigue [Unknown]
  - Dysgeusia [Unknown]
  - Alopecia [Unknown]
  - Haematuria [Unknown]
  - Asthenia [Unknown]
  - Hypophagia [Unknown]
  - Gait disturbance [Unknown]
  - Dyspnoea [Unknown]
  - Rash erythematous [Unknown]
  - Drug hypersensitivity [Unknown]
  - Joint swelling [Unknown]
  - Pyrexia [Unknown]
  - Chills [Unknown]
  - Cough [Unknown]
  - Urinary tract infection [Unknown]
  - Neutrophil count increased [Unknown]
  - Blood creatinine increased [Unknown]
  - Blood creatinine increased [Unknown]
  - Diarrhoea haemorrhagic [Unknown]
  - Oxygen saturation decreased [Unknown]
  - Chest pain [Unknown]
  - Hypercholesterolaemia [Unknown]
  - White blood cell count increased [Unknown]
  - Mitral valve incompetence [Not Recovered/Not Resolved]
  - Oedema [Unknown]
